FAERS Safety Report 15618302 (Version 1)
Quarter: 2018Q4

REPORT INFORMATION
  Report Type: Spontaneous
  Country: US (occurrence: US)
  Receive Date: 20181114
  Receipt Date: 20181114
  Transmission Date: 20190205
  Serious: No
  Sender: FDA-Public Use
  Company Number: US-PFIZER INC-2018454129

PATIENT
  Age: 79 Year
  Sex: Female
  Weight: 107.5 kg

DRUGS (1)
  1. LYRICA [Suspect]
     Active Substance: PREGABALIN
     Indication: NEUROPATHY PERIPHERAL
     Dosage: 50 MG, UNK
     Dates: start: 2015

REACTIONS (4)
  - Pruritus [Unknown]
  - Pain [Unknown]
  - Weight increased [Unknown]
  - Drug ineffective [Unknown]
